FAERS Safety Report 5047541-4 (Version None)
Quarter: 2006Q3

REPORT INFORMATION
  Report Type: 
  Country: None (occurrence: None)
  Receive Date: 20060711
  Receipt Date: 20051011
  Transmission Date: 20061208
  Serious: Yes (Life-Threatening, Hospitalization, Other)
  Sender: FDA-Public Use
  Company Number: FRWYE053413OCT05

PATIENT
  Sex: Male
  Weight: 91 kg

DRUGS (5)
  1. ENBREL [Suspect]
     Indication: RHEUMATOID ARTHRITIS
     Route: 058
     Dates: start: 20031101, end: 20050801
  2. ARAVA [Suspect]
     Indication: RHEUMATOID ARTHRITIS
     Route: 048
     Dates: start: 20030201, end: 20031101
  3. METHOTREXATE [Suspect]
     Indication: RHEUMATOID ARTHRITIS
     Dosage: UNKNOWN
     Route: 048
     Dates: start: 19890101, end: 20030201
  4. NOVATREX [Suspect]
     Indication: RHEUMATOID ARTHRITIS
     Dosage: 10MG TO 15MG TOTAL WEEKLY
     Route: 048
     Dates: start: 20050121, end: 20050801
  5. CORTANCYL [Concomitant]
     Indication: RHEUMATOID ARTHRITIS
     Route: 048
     Dates: start: 20031101

REACTIONS (14)
  - ANAEMIA [None]
  - BLOOD CREATININE INCREASED [None]
  - BONE PAIN [None]
  - CARDIAC DISORDER [None]
  - CERVICAL CORD COMPRESSION [None]
  - COUGH [None]
  - DRUG INEFFECTIVE [None]
  - GENERAL PHYSICAL HEALTH DETERIORATION [None]
  - INFECTION [None]
  - MASS [None]
  - MULTIPLE MYELOMA [None]
  - PARAPARESIS [None]
  - RHINITIS [None]
  - WEIGHT DECREASED [None]
